FAERS Safety Report 8037816-9 (Version None)
Quarter: 2012Q1

REPORT INFORMATION
  Report Type: 
  Country: None (occurrence: None)
  Receive Date: 20120111
  Receipt Date: 20120106
  Transmission Date: 20120608
  Serious: Yes (Other)
  Sender: FDA-Public Use
  Company Number: US-AMGEN-USASP2012001228

PATIENT
  Age: 90 Year
  Sex: Male
  Weight: 78.912 kg

DRUGS (2)
  1. ACTOS [Concomitant]
     Indication: DIABETES MELLITUS
     Dosage: UNK UNK, QD
     Route: 048
  2. PROCRIT [Suspect]
     Indication: ANAEMIA
     Dosage: UNK UNK, PRN
     Route: 058
     Dates: start: 20110101

REACTIONS (1)
  - HAEMOGLOBIN DECREASED [None]
